FAERS Safety Report 14695576 (Version 1)
Quarter: 2018Q1

REPORT INFORMATION
  Report Type: Report from Study
  Country: US (occurrence: CA)
  Receive Date: 20180329
  Receipt Date: 20180329
  Transmission Date: 20180509
  Serious: Yes (Other)
  Sender: FDA-Public Use
  Company Number: US-SUNOVION-2018SUN001213

PATIENT
  Sex: Male

DRUGS (10)
  1. GLYCOPYRROLATE. [Suspect]
     Active Substance: GLYCOPYRROLATE
     Indication: ASTHMA
     Dosage: 1 DF (50 UG), UNK
     Route: 055
     Dates: start: 2015
  2. ZENHALE [Concomitant]
     Active Substance: FORMOTEROL FUMARATE\MOMETASONE FUROATE
     Dosage: 200/5 UG;
     Dates: start: 2015
  3. VENTOLIN [Concomitant]
     Active Substance: ALBUTEROL SULFATE
     Dosage: 100 ?G, UNK
     Dates: start: 2015
  4. ALVESCO [Concomitant]
     Active Substance: CICLESONIDE
     Dosage: 200 ?G, UNK
     Dates: start: 2015
  5. APO-ATORVASTATIN [Concomitant]
     Active Substance: ATORVASTATIN
     Dosage: 5 MG, UNK
     Dates: start: 2014
  6. APO ESOMEPRAZOLE [Concomitant]
     Active Substance: ESOMEPRAZOLE MAGNESIUM
     Dosage: 40 ?G, UNK
     Dates: start: 2014
  7. CORTEF [Concomitant]
     Active Substance: HYDROCORTISONE
     Dosage: 20 MG, UNK
     Dates: start: 2015
  8. TELMISARTAN. [Concomitant]
     Active Substance: TELMISARTAN
     Dosage: 40 MG, UNK
     Dates: start: 2014
  9. AMLODIPINE [Suspect]
     Active Substance: AMLODIPINE BESYLATE
     Indication: HYPERTENSION
     Dosage: 5 MG, UNK
     Route: 048
     Dates: start: 2014
  10. RIVA ALENDRONATE [Concomitant]
     Dosage: 70 MG, UNK
     Dates: start: 2014

REACTIONS (11)
  - Hypersensitivity [Unknown]
  - Hepatic mass [Unknown]
  - Cough [Unknown]
  - Adrenal insufficiency [Unknown]
  - Asthma [Unknown]
  - Middle insomnia [Unknown]
  - Product use in unapproved indication [Unknown]
  - Secretion discharge [Unknown]
  - Wheezing [Unknown]
  - Dyspnoea exertional [Unknown]
  - Exercise tolerance decreased [Unknown]

NARRATIVE: CASE EVENT DATE: 2015
